FAERS Safety Report 24436100 (Version 1)
Quarter: 2024Q4

REPORT INFORMATION
  Report Type: Report from Study
  Country: US (occurrence: US)
  Receive Date: 20241015
  Receipt Date: 20241015
  Transmission Date: 20250115
  Serious: Yes (Hospitalization)
  Sender: ACCORD
  Company Number: US-Accord-450585

PATIENT
  Age: 74 Year
  Sex: Male
  Weight: 77.7 kg

DRUGS (1)
  1. CLOZAPINE [Suspect]
     Active Substance: CLOZAPINE
     Indication: Schizophrenia
     Dosage: 150MG, EVERY NIGHT AT BEDTIME
     Route: 048

REACTIONS (1)
  - Mental status changes [Unknown]
